FAERS Safety Report 6013454-4 (Version None)
Quarter: 2008Q4

REPORT INFORMATION
  Report Type: 
  Country: None (occurrence: None)
  Receive Date: 20081218
  Receipt Date: 20081218
  Transmission Date: 20090506
  Serious: Yes (Life-Threatening, Other)
  Sender: FDA-Public Use
  Company Number: None

PATIENT
  Sex: Female
  Weight: 45.3597 kg

DRUGS (2)
  1. CYMBALTA [Suspect]
     Indication: CONVERSION DISORDER
     Dosage: 60 MG TWICE A DAY PO
     Route: 048
  2. CYMBALTA [Suspect]
     Indication: DEPRESSION
     Dosage: 60 MG TWICE A DAY PO
     Route: 048

REACTIONS (3)
  - IMPAIRED GASTRIC EMPTYING [None]
  - SUICIDE ATTEMPT [None]
  - URINARY RETENTION [None]
